FAERS Safety Report 6120965-X (Version None)
Quarter: 2009Q1

REPORT INFORMATION
  Report Type: 
  Country: None (occurrence: None)
  Receive Date: 20090312
  Receipt Date: 20090312
  Transmission Date: 20090719
  Serious: Yes (Other)
  Sender: FDA-Public Use
  Company Number: None

PATIENT
  Age: 24 Year
  Sex: Female
  Weight: 53.5244 kg

DRUGS (2)
  1. YAZ [Suspect]
     Indication: ACNE
     Dosage: ONE PILL DAILY PO
     Route: 048
     Dates: start: 20080401, end: 20080824
  2. YAZ [Suspect]
     Indication: ORAL CONTRACEPTION
     Dosage: ONE PILL DAILY PO
     Route: 048
     Dates: start: 20080401, end: 20080824

REACTIONS (10)
  - ANXIETY [None]
  - DEFAECATION URGENCY [None]
  - DIARRHOEA [None]
  - DYSPEPSIA [None]
  - ECONOMIC PROBLEM [None]
  - EMOTIONAL DISORDER [None]
  - IMPAIRED WORK ABILITY [None]
  - NAUSEA [None]
  - VOMITING [None]
  - WEIGHT DECREASED [None]
